FAERS Safety Report 25752842 (Version 1)
Quarter: 2025Q3

REPORT INFORMATION
  Report Type: Spontaneous
  Country: GB (occurrence: GB)
  Receive Date: 20250902
  Receipt Date: 20250902
  Transmission Date: 20251021
  Serious: Yes (Other)
  Sender: SK LIFE SCIENCE
  Company Number: GB-ACRAF-2025-038743

PATIENT

DRUGS (9)
  1. XCOPRI [Suspect]
     Active Substance: CENOBAMATE
     Indication: Product used for unknown indication
     Dosage: 150MG ONCE A DAY
     Route: 065
  2. WITHANIA SOMNIFERA ROOT [Concomitant]
     Active Substance: WITHANIA SOMNIFERA ROOT
     Indication: Product used for unknown indication
     Route: 065
  3. RHODIOLA ROSEA EXTRACT [Concomitant]
     Indication: Product used for unknown indication
     Route: 065
  4. MAGNESIUM OXIDE [Concomitant]
     Active Substance: MAGNESIUM OXIDE
     Indication: Product used for unknown indication
     Route: 065
  5. VITAMIN B5 [PANTOTHENIC ACID] [Concomitant]
     Indication: Product used for unknown indication
     Route: 065
  6. VITAMIN B5 [PANTOTHENIC ACID] [Concomitant]
     Indication: Product used for unknown indication
     Route: 065
  7. VITAMIN B6 [Concomitant]
     Active Substance: PYRIDOXINE HYDROCHLORIDE
     Indication: Product used for unknown indication
     Route: 065
  8. PIPERINE [Concomitant]
     Active Substance: PIPERINE
     Indication: Product used for unknown indication
     Route: 065
  9. ESLICARBAZEPINE [Concomitant]
     Active Substance: ESLICARBAZEPINE
     Indication: Product used for unknown indication
     Route: 065

REACTIONS (2)
  - Seizure [Unknown]
  - Drug interaction [Unknown]
